FAERS Safety Report 6409824-2 (Version None)
Quarter: 2009Q4

REPORT INFORMATION
  Report Type: 
  Country: None (occurrence: None)
  Receive Date: 20091022
  Receipt Date: 20091014
  Transmission Date: 20100525
  Serious: Yes (Hospitalization)
  Sender: FDA-Public Use
  Company Number: MT-ABBOTT-09P-103-0602821-00

PATIENT
  Age: 82 Year
  Sex: Female

DRUGS (1)
  1. KLARICID-XL [Suspect]
     Indication: BRONCHITIS
     Route: 048
     Dates: start: 20090929, end: 20091009

REACTIONS (5)
  - DECREASED APPETITE [None]
  - FATIGUE [None]
  - LIVER FUNCTION TEST ABNORMAL [None]
  - MALAISE [None]
  - PYREXIA [None]
